FAERS Safety Report 5573743-4 (Version None)
Quarter: 2007Q4

REPORT INFORMATION
  Report Type: 
  Country: None (occurrence: None)
  Receive Date: 20071226
  Receipt Date: 20071220
  Transmission Date: 20080405
  Serious: Yes (Hospitalization)
  Sender: FDA-Public Use
  Company Number: US-BRISTOL-MYERS SQUIBB COMPANY-13923065

PATIENT
  Age: 72 Year
  Sex: Male
  Weight: 81 kg

DRUGS (12)
  1. CETUXIMAB [Suspect]
     Indication: COLORECTAL CANCER METASTATIC
     Dosage: DAY 1, 8, 15 AND 22.
     Route: 042
     Dates: start: 20070718, end: 20070913
  2. BEVACIZUMAB [Suspect]
     Indication: COLORECTAL CANCER METASTATIC
     Dosage: DAY 1 AND 15
     Route: 042
     Dates: start: 20070718, end: 20070913
  3. FLUOROURACIL [Suspect]
     Indication: COLORECTAL CANCER METASTATIC
     Dosage: INFUSION STARTED FROM 18/JUL/07-15/SEP/07.
     Route: 042
     Dates: start: 20070718, end: 20070915
  4. LEUCOVORIN [Suspect]
     Indication: COLORECTAL CANCER METASTATIC
     Dosage: DAY 1 AND 15
     Route: 042
     Dates: start: 20070718, end: 20070913
  5. FLOMAX [Concomitant]
     Indication: BENIGN PROSTATIC HYPERPLASIA
     Route: 048
     Dates: start: 20070309
  6. PREVACID [Concomitant]
     Indication: ULCER
     Route: 048
     Dates: start: 20070503
  7. LISINOPRIL [Concomitant]
     Indication: HYPERTENSION
     Route: 048
     Dates: start: 20070419
  8. RESTORIL [Concomitant]
     Indication: INSOMNIA
     Route: 048
     Dates: start: 20070427
  9. REMERON [Concomitant]
     Indication: DEPRESSION
     Route: 048
     Dates: start: 20070718
  10. COMPAZINE [Concomitant]
     Indication: NAUSEA
     Route: 048
     Dates: start: 20070718
  11. ELIDEL [Concomitant]
     Indication: RASH
     Route: 061
     Dates: start: 20070725
  12. DOXYCYCLINE HYCLATE [Concomitant]

REACTIONS (3)
  - DIARRHOEA [None]
  - DYSPHAGIA [None]
  - RASH [None]
